FAERS Safety Report 8579056-0 (Version None)
Quarter: 2012Q2

REPORT INFORMATION
  Report Type: 
  Country: None (occurrence: None)
  Receive Date: 20120423
  Receipt Date: 20100820
  Transmission Date: 20120825
  Serious: Yes (Other)
  Sender: FDA-Public Use
  Company Number: PHHY2010US31106

PATIENT
  Age: 47 Year
  Sex: Female
  Weight: 51.3 kg

DRUGS (2)
  1. EXJADE [Suspect]
     Indication: IRON OVERLOAD
     Dosage: 1000MG, QD, ORAL
     Route: 048
  2. EXJADE [Suspect]
     Indication: SICKLE CELL ANAEMIA
     Dosage: 1000MG, QD, ORAL
     Route: 048

REACTIONS (2)
  - SERUM FERRITIN INCREASED [None]
  - ABDOMINAL PAIN UPPER [None]
